FAERS Safety Report 6203706-7 (Version None)
Quarter: 2009Q2

REPORT INFORMATION
  Report Type: 
  Country: None (occurrence: None)
  Receive Date: 20090518
  Receipt Date: 20090219
  Transmission Date: 20091009
  Serious: No
  Sender: FDA-Public Use
  Company Number: WAES 0902USA03531

PATIENT
  Age: 80 Year
  Sex: Male

DRUGS (19)
  1. JANUVIA [Suspect]
     Indication: TYPE 2 DIABETES MELLITUS
     Dosage: 100 MG/DAILY/PO
     Route: 048
     Dates: start: 20090212, end: 20090218
  2. ACTOS [Concomitant]
  3. AGGRENOX [Concomitant]
  4. CELEBREX [Concomitant]
  5. DETROL LA [Concomitant]
  6. DILANTIN [Concomitant]
  7. LEXAPRO [Concomitant]
  8. LIPITOR [Concomitant]
  9. PRINIVIL [Concomitant]
  10. TRICOR [Concomitant]
  11. XALATAN [Concomitant]
  12. ZETIA [Concomitant]
  13. CALCIUM [Concomitant]
  14. GLIPIZIDE [Concomitant]
  15. IRON [Concomitant]
  16. METFORMIN [Concomitant]
  17. METHIMAZOLE [Concomitant]
  18. OMEGA-3 MARINE TRIGLYCERIDES [Concomitant]
  19. VITAMINS [Concomitant]

REACTIONS (2)
  - GASTROOESOPHAGEAL REFLUX DISEASE [None]
  - THROAT IRRITATION [None]
